FAERS Safety Report 4819415-2 (Version None)
Quarter: 2005Q4

REPORT INFORMATION
  Report Type: 
  Country: None (occurrence: None)
  Receive Date: 20051012
  Receipt Date: 20050624
  Transmission Date: 20060501
  Serious: Yes (Other)
  Sender: FDA-Public Use
  Company Number: A03200501922

PATIENT

DRUGS (2)
  1. UROXATRAL [Suspect]
     Dosage: ORAL
     Route: 048
  2. CIPROFLOXACIN HCL [Suspect]
     Dosage: ORAL
     Route: 048

REACTIONS (2)
  - DRUG INTERACTION [None]
  - ELECTROCARDIOGRAM QT PROLONGED [None]
